FAERS Safety Report 25374330 (Version 3)
Quarter: 2025Q2

REPORT INFORMATION
  Report Type: Spontaneous
  Country: GB (occurrence: GB)
  Receive Date: 20250529
  Receipt Date: 20250617
  Transmission Date: 20250716
  Serious: Yes (Life-Threatening, Hospitalization, Disabling, Other)
  Sender: MYLAN
  Company Number: GB-MYLANLABS-2025M1044728

PATIENT
  Age: 23 Year
  Sex: Female
  Weight: 156 kg

DRUGS (40)
  1. CLOZARIL [Suspect]
     Active Substance: CLOZAPINE
     Indication: Borderline personality disorder
     Dosage: UNK, TID (100MG OM PLUS100MG MIDDAY + 200MG ON (DAILY DOSE 400MG))
     Route: 048
     Dates: start: 20241210
  2. CLOZARIL [Suspect]
     Active Substance: CLOZAPINE
     Dosage: UNK, TID (100MG OM PLUS100MG MIDDAY + 200MG ON (DAILY DOSE 400MG))
     Dates: start: 20241210
  3. CLOZARIL [Suspect]
     Active Substance: CLOZAPINE
     Dosage: UNK, TID (100MG OM PLUS100MG MIDDAY + 200MG ON (DAILY DOSE 400MG))
     Dates: start: 20241210
  4. CLOZARIL [Suspect]
     Active Substance: CLOZAPINE
     Dosage: UNK, TID (100MG OM PLUS100MG MIDDAY + 200MG ON (DAILY DOSE 400MG))
     Route: 048
     Dates: start: 20241210
  5. CLOZARIL [Suspect]
     Active Substance: CLOZAPINE
     Dosage: 100 MILLIGRAM, TID (TDS)
     Route: 048
     Dates: start: 20250519, end: 20250520
  6. CLOZARIL [Suspect]
     Active Substance: CLOZAPINE
     Dosage: 100 MILLIGRAM, TID (TDS)
     Dates: start: 20250519, end: 20250520
  7. CLOZARIL [Suspect]
     Active Substance: CLOZAPINE
     Dosage: 100 MILLIGRAM, TID (TDS)
     Dates: start: 20250519, end: 20250520
  8. CLOZARIL [Suspect]
     Active Substance: CLOZAPINE
     Dosage: 100 MILLIGRAM, TID (TDS)
     Route: 048
     Dates: start: 20250519, end: 20250520
  9. LITHIUM [Concomitant]
     Active Substance: LITHIUM
     Indication: Borderline personality disorder
     Dosage: 600 MILLIGRAM, QD (ON)
  10. LITHIUM [Concomitant]
     Active Substance: LITHIUM
     Dosage: 600 MILLIGRAM, QD (ON)
     Route: 048
  11. LITHIUM [Concomitant]
     Active Substance: LITHIUM
     Dosage: 600 MILLIGRAM, QD (ON)
     Route: 048
  12. LITHIUM [Concomitant]
     Active Substance: LITHIUM
     Dosage: 600 MILLIGRAM, QD (ON)
  13. LITHIUM [Concomitant]
     Active Substance: LITHIUM
     Indication: Borderline personality disorder
     Dosage: 520 MILLIGRAM, TID (TDS) ( SWITCHED POST STROKE FROM CARBONATE TO CITRATE DUE TO NEED TO GIVEN LIQUID FORMULATION)
  14. LITHIUM [Concomitant]
     Active Substance: LITHIUM
     Dosage: 520 MILLIGRAM, TID (TDS) ( SWITCHED POST STROKE FROM CARBONATE TO CITRATE DUE TO NEED TO GIVEN LIQUID FORMULATION)
     Route: 048
  15. LITHIUM [Concomitant]
     Active Substance: LITHIUM
     Dosage: 520 MILLIGRAM, TID (TDS) ( SWITCHED POST STROKE FROM CARBONATE TO CITRATE DUE TO NEED TO GIVEN LIQUID FORMULATION)
     Route: 048
  16. LITHIUM [Concomitant]
     Active Substance: LITHIUM
     Dosage: 520 MILLIGRAM, TID (TDS) ( SWITCHED POST STROKE FROM CARBONATE TO CITRATE DUE TO NEED TO GIVEN LIQUID FORMULATION)
  17. SERTRALINE [Concomitant]
     Active Substance: SERTRALINE HYDROCHLORIDE
     Indication: Anxiety
     Dosage: 100 MILLIGRAM, AM (OM) (ALSO STOPPED IN CASE OF SEROTONIN SYNDROME)
     Dates: end: 202505
  18. SERTRALINE [Concomitant]
     Active Substance: SERTRALINE HYDROCHLORIDE
     Dosage: 100 MILLIGRAM, AM (OM) (ALSO STOPPED IN CASE OF SEROTONIN SYNDROME)
     Route: 048
     Dates: end: 202505
  19. SERTRALINE [Concomitant]
     Active Substance: SERTRALINE HYDROCHLORIDE
     Dosage: 100 MILLIGRAM, AM (OM) (ALSO STOPPED IN CASE OF SEROTONIN SYNDROME)
     Route: 048
     Dates: end: 202505
  20. SERTRALINE [Concomitant]
     Active Substance: SERTRALINE HYDROCHLORIDE
     Dosage: 100 MILLIGRAM, AM (OM) (ALSO STOPPED IN CASE OF SEROTONIN SYNDROME)
     Dates: end: 202505
  21. HALOPERIDOL [Concomitant]
     Active Substance: HALOPERIDOL
     Indication: Borderline personality disorder
     Dosage: 5 MILLIGRAM, BID (BD) (STOPPED ON ADMISSION, AROUND 1 WEEK PRIOR TO ONSET OF PYREXIA)
     Dates: end: 202505
  22. HALOPERIDOL [Concomitant]
     Active Substance: HALOPERIDOL
     Dosage: 5 MILLIGRAM, BID (BD) (STOPPED ON ADMISSION, AROUND 1 WEEK PRIOR TO ONSET OF PYREXIA)
     Route: 048
     Dates: end: 202505
  23. HALOPERIDOL [Concomitant]
     Active Substance: HALOPERIDOL
     Dosage: 5 MILLIGRAM, BID (BD) (STOPPED ON ADMISSION, AROUND 1 WEEK PRIOR TO ONSET OF PYREXIA)
     Route: 048
     Dates: end: 202505
  24. HALOPERIDOL [Concomitant]
     Active Substance: HALOPERIDOL
     Dosage: 5 MILLIGRAM, BID (BD) (STOPPED ON ADMISSION, AROUND 1 WEEK PRIOR TO ONSET OF PYREXIA)
     Dates: end: 202505
  25. RISPERIDONE [Concomitant]
     Active Substance: RISPERIDONE
     Indication: Borderline personality disorder
     Dosage: 0.5 MILLIGRAM, BID (BD) (STOPPED ON ADMISSION, AROUND 1 WEEK PRIOR TO ONSET OF PYREXIA)
     Dates: end: 202505
  26. RISPERIDONE [Concomitant]
     Active Substance: RISPERIDONE
     Dosage: 0.5 MILLIGRAM, BID (BD) (STOPPED ON ADMISSION, AROUND 1 WEEK PRIOR TO ONSET OF PYREXIA)
     Route: 048
     Dates: end: 202505
  27. RISPERIDONE [Concomitant]
     Active Substance: RISPERIDONE
     Dosage: 0.5 MILLIGRAM, BID (BD) (STOPPED ON ADMISSION, AROUND 1 WEEK PRIOR TO ONSET OF PYREXIA)
     Route: 048
     Dates: end: 202505
  28. RISPERIDONE [Concomitant]
     Active Substance: RISPERIDONE
     Dosage: 0.5 MILLIGRAM, BID (BD) (STOPPED ON ADMISSION, AROUND 1 WEEK PRIOR TO ONSET OF PYREXIA)
     Dates: end: 202505
  29. CLONAZEPAM [Concomitant]
     Active Substance: CLONAZEPAM
     Indication: Anxiety
     Dosage: UNK, QID (VARIOUS DOSES, QDS)
  30. CLONAZEPAM [Concomitant]
     Active Substance: CLONAZEPAM
     Indication: Agitation
     Dosage: UNK, QID (VARIOUS DOSES, QDS)
  31. CLONAZEPAM [Concomitant]
     Active Substance: CLONAZEPAM
     Dosage: UNK, QID (VARIOUS DOSES, QDS)
     Route: 048
  32. CLONAZEPAM [Concomitant]
     Active Substance: CLONAZEPAM
     Dosage: UNK, QID (VARIOUS DOSES, QDS)
     Route: 048
  33. CLONAZEPAM [Concomitant]
     Active Substance: CLONAZEPAM
     Dosage: UNK UNK, TID (0.5MG + 0.5MG + 1.5MG, CONTINUED AFTER INITIAL SWITCH TO LORAZEPAM)
  34. CLONAZEPAM [Concomitant]
     Active Substance: CLONAZEPAM
     Dosage: UNK UNK, TID (0.5MG + 0.5MG + 1.5MG, CONTINUED AFTER INITIAL SWITCH TO LORAZEPAM)
  35. CLONAZEPAM [Concomitant]
     Active Substance: CLONAZEPAM
     Dosage: UNK UNK, TID (0.5MG + 0.5MG + 1.5MG, CONTINUED AFTER INITIAL SWITCH TO LORAZEPAM)
     Route: 048
  36. CLONAZEPAM [Concomitant]
     Active Substance: CLONAZEPAM
     Dosage: UNK UNK, TID (0.5MG + 0.5MG + 1.5MG, CONTINUED AFTER INITIAL SWITCH TO LORAZEPAM)
     Route: 048
  37. LORAZEPAM [Concomitant]
     Active Substance: LORAZEPAM
     Indication: Agitation
  38. LORAZEPAM [Concomitant]
     Active Substance: LORAZEPAM
     Route: 048
  39. LORAZEPAM [Concomitant]
     Active Substance: LORAZEPAM
     Route: 048
  40. LORAZEPAM [Concomitant]
     Active Substance: LORAZEPAM

REACTIONS (9)
  - Cerebrovascular accident [Not Recovered/Not Resolved]
  - Hyperpyrexia [Recovered/Resolved]
  - Neuroleptic malignant syndrome [Recovering/Resolving]
  - Blood creatine phosphokinase increased [Recovered/Resolved]
  - Mental impairment [Unknown]
  - Red cell distribution width increased [Unknown]
  - Mean platelet volume increased [Unknown]
  - Therapeutic product effect incomplete [Unknown]
  - Off label use [Unknown]

NARRATIVE: CASE EVENT DATE: 20241210
